FAERS Safety Report 5762426-3 (Version None)
Quarter: 2008Q2

REPORT INFORMATION
  Report Type: 
  Country: None (occurrence: None)
  Receive Date: 20080609
  Receipt Date: 20080603
  Transmission Date: 20081010
  Serious: Yes (Congenital Anomaly)
  Sender: FDA-Public Use
  Company Number: FR-JNJFOC-20080505398

PATIENT
  Sex: Male
  Weight: 3.3 kg

DRUGS (4)
  1. EPITOMAX [Suspect]
     Indication: DRUG EXPOSURE DURING PREGNANCY
  2. VALIUM [Suspect]
     Indication: DRUG EXPOSURE DURING PREGNANCY
  3. TEGRETOL [Suspect]
     Indication: DRUG EXPOSURE DURING PREGNANCY
  4. URBANYL [Suspect]
     Indication: DRUG EXPOSURE DURING PREGNANCY

REACTIONS (6)
  - CLEFT PALATE [None]
  - HYPOTONIA [None]
  - IRRITABILITY [None]
  - MATERNAL DRUGS AFFECTING FOETUS [None]
  - MICROGNATHIA [None]
  - RETROGNATHIA [None]
